FAERS Safety Report 15945673 (Version 1)
Quarter: 2019Q1

REPORT INFORMATION
  Report Type: Spontaneous
  Country: GB (occurrence: GB)
  Receive Date: 20190211
  Receipt Date: 20190211
  Transmission Date: 20190417
  Serious: Yes (Other)
  Sender: FDA-Public Use
  Company Number: GB-ACCORD-106057

PATIENT
  Age: 58 Year
  Sex: Female
  Weight: 70 kg

DRUGS (5)
  1. AMLODIPINE [Suspect]
     Active Substance: AMLODIPINE BESYLATE
     Indication: HYPERTENSION
     Route: 048
  2. BISOPROLOL FUMARATE. [Concomitant]
     Active Substance: BISOPROLOL FUMARATE
  3. ATORVASTATIN [Concomitant]
     Active Substance: ATORVASTATIN
  4. PERINDOPRIL [Concomitant]
     Active Substance: PERINDOPRIL
  5. ACETYLSALICYLIC ACID [Concomitant]
     Active Substance: ASPIRIN

REACTIONS (3)
  - Gingival swelling [Not Recovered/Not Resolved]
  - Gingival bleeding [Unknown]
  - Gingival erythema [Unknown]

NARRATIVE: CASE EVENT DATE: 201804
